FAERS Safety Report 7024226-6 (Version None)
Quarter: 2010Q3

REPORT INFORMATION
  Report Type: 
  Country: None (occurrence: None)
  Receive Date: 20100929
  Receipt Date: 20100920
  Transmission Date: 20110219
  Serious: Yes (Hospitalization, Other)
  Sender: FDA-Public Use
  Company Number: 2009SP026627

PATIENT
  Age: 26 Year
  Sex: Female
  Weight: 63.5036 kg

DRUGS (5)
  1. NUVARING [Suspect]
     Indication: CONTRACEPTION
     Dates: start: 20060718, end: 20061101
  2. NUVARING [Suspect]
     Indication: CONTRACEPTION
     Dates: start: 20070123, end: 20070901
  3. ACETAMINOPHEN [Concomitant]
  4. IBUPROFEN [Concomitant]
  5. PAXIL [Concomitant]

REACTIONS (31)
  - ANAEMIA [None]
  - ANXIETY [None]
  - ASCITES [None]
  - ATELECTASIS [None]
  - COCCYDYNIA [None]
  - DEEP VEIN THROMBOSIS [None]
  - DEVICE DISLOCATION [None]
  - DIZZINESS [None]
  - DRUG EXPOSURE BEFORE PREGNANCY [None]
  - HYPOKALAEMIA [None]
  - HYPOTENSION [None]
  - LUNG INFILTRATION [None]
  - LUNG NEOPLASM [None]
  - LYMPHADENOPATHY [None]
  - MENSTRUATION IRREGULAR [None]
  - MUSCULOSKELETAL PAIN [None]
  - NAUSEA [None]
  - PELVIC HAEMATOMA [None]
  - PELVIC VENOUS THROMBOSIS [None]
  - PERITONEAL HAEMORRHAGE [None]
  - PLEURAL EFFUSION [None]
  - PREGNANCY [None]
  - PULMONARY EMBOLISM [None]
  - RETROPERITONEAL HAEMATOMA [None]
  - RHINITIS ALLERGIC [None]
  - SINUS CONGESTION [None]
  - SUICIDE ATTEMPT [None]
  - SYNCOPE [None]
  - THROMBOSIS IN DEVICE [None]
  - VENA CAVA THROMBOSIS [None]
  - VOMITING [None]
